FAERS Safety Report 7502977-4 (Version None)
Quarter: 2011Q2

REPORT INFORMATION
  Report Type: 
  Country: None (occurrence: None)
  Receive Date: 20110525
  Receipt Date: 20100910
  Transmission Date: 20111010
  Serious: No
  Sender: FDA-Public Use
  Company Number: US-NOVEN-ALL1-2010-04805

PATIENT
  Sex: Male
  Weight: 36.281 kg

DRUGS (2)
  1. DAYTRANA [Suspect]
     Dosage: UNK MG, 1X/DAY:QD, DESCRIBED AS DOSE DOUBLED
     Route: 062
     Dates: start: 20080101
  2. DAYTRANA [Suspect]
     Dosage: UNK MG, 1X/DAY:QD
     Route: 062
     Dates: start: 20080101, end: 20080101

REACTIONS (2)
  - DRUG EFFECT DELAYED [None]
  - APPLICATION SITE PAIN [None]
